FAERS Safety Report 5285307-0 (Version None)
Quarter: 2007Q2

REPORT INFORMATION
  Report Type: 
  Country: None (occurrence: None)
  Receive Date: 20070403
  Receipt Date: 20070326
  Transmission Date: 20071010
  Serious: Yes (Other)
  Sender: FDA-Public Use
  Company Number: MT-ROXANE LABORATORIES, INC-2007-BP-04178RO

PATIENT
  Age: 67 Year
  Sex: Male

DRUGS (1)
  1. AZATHIOPRINE [Suspect]
     Indication: COLITIS ULCERATIVE
     Dosage: 100 MG DAILY
     Route: 048

REACTIONS (2)
  - DYSGEUSIA [None]
  - WEIGHT DECREASED [None]
